FAERS Safety Report 20554106 (Version 1)
Quarter: 2022Q1

REPORT INFORMATION
  Report Type: Spontaneous
  Country: US (occurrence: US)
  Receive Date: 20220304
  Receipt Date: 20220304
  Transmission Date: 20220423
  Serious: No
  Sender: FDA-Public Use
  Company Number: US-JNJFOC-20220250461

PATIENT
  Age: 75 Year
  Sex: Female

DRUGS (1)
  1. MENS ROGAINE EXTRA STRENGTH [Suspect]
     Active Substance: MINOXIDIL
     Indication: Product used for unknown indication
     Dosage: DOSE: 1 CAPFUL ONLY USED IT ON TWO SEPARATE DAYS SO FAR
     Route: 061
     Dates: start: 20220219

REACTIONS (3)
  - Product use issue [Unknown]
  - Intentional product misuse [Unknown]
  - Expired product administered [Unknown]

NARRATIVE: CASE EVENT DATE: 20220219
